FAERS Safety Report 25520492 (Version 1)
Quarter: 2025Q3

REPORT INFORMATION
  Report Type: Spontaneous
  Country: CN (occurrence: CN)
  Receive Date: 20250704
  Receipt Date: 20250704
  Transmission Date: 20251021
  Serious: Yes (Hospitalization)
  Sender: PFIZER
  Company Number: CN-PFIZER INC-PV202500078259

PATIENT
  Age: 24 Year
  Sex: Female
  Weight: 44 kg

DRUGS (1)
  1. METHOTREXATE SODIUM [Suspect]
     Active Substance: METHOTREXATE SODIUM
     Indication: Ectopic pregnancy
     Dosage: 60 MG, 1X/DAY
     Route: 030
     Dates: start: 20250528, end: 20250528

REACTIONS (9)
  - Myelosuppression [Recovering/Resolving]
  - Mouth ulceration [Recovered/Resolved]
  - Rash [Recovering/Resolving]
  - Face oedema [Recovering/Resolving]
  - Pruritus [Recovering/Resolving]
  - Erythema [Recovering/Resolving]
  - Swelling face [Recovering/Resolving]
  - Nausea [Recovering/Resolving]
  - Off label use [Unknown]

NARRATIVE: CASE EVENT DATE: 20250528
